FAERS Safety Report 4498307-5 (Version None)
Quarter: 2004Q4

REPORT INFORMATION
  Report Type: 
  Country: None (occurrence: None)
  Receive Date: 20041109
  Receipt Date: 20041109
  Transmission Date: 20050328
  Serious: Yes (Life-Threatening)
  Sender: FDA-Public Use
  Company Number: None

PATIENT
  Age: 67 Year
  Sex: Female
  Weight: 78.0187 kg

DRUGS (3)
  1. NEULASTA [Suspect]
     Indication: CHRONIC LYMPHOCYTIC LEUKAEMIA
     Dosage: 6 UG  ONCE SUBCUTANEOUS
     Route: 058
     Dates: start: 20040921, end: 20040921
  2. RITUXAN [Concomitant]
  3. FLUDARA [Concomitant]

REACTIONS (1)
  - ABDOMINAL PAIN UPPER [None]
